FAERS Safety Report 25601423 (Version 1)
Quarter: 2025Q3

REPORT INFORMATION
  Report Type: Spontaneous
  Country: EU (occurrence: EU)
  Receive Date: 20250724
  Receipt Date: 20250724
  Transmission Date: 20251020
  Serious: Yes (Hospitalization, Other)
  Sender: AUROBINDO
  Company Number: EU-AEMPS-1722717

PATIENT
  Age: 39 Year
  Sex: Male

DRUGS (3)
  1. DEXKETOPROFEN [Suspect]
     Active Substance: DEXKETOPROFEN
     Indication: Back pain
     Dosage: 25 MILLIGRAM, *Q8H
     Route: 048
     Dates: start: 20250416, end: 20250423
  2. ACETAMINOPHEN [Suspect]
     Active Substance: ACETAMINOPHEN
     Indication: Back pain
     Dosage: 1 GRAM, *Q8H
     Route: 048
     Dates: start: 20250416, end: 20250423
  3. METAMIZOL [Suspect]
     Active Substance: METAMIZOLE SODIUM
     Indication: Back pain
     Dosage: 575 MILLIGRAM, *Q8H
     Route: 048
     Dates: start: 20250416, end: 20250423

REACTIONS (3)
  - Hepatocellular injury [Recovering/Resolving]
  - Hyperbilirubinaemia [Recovering/Resolving]
  - Coagulopathy [Recovered/Resolved]

NARRATIVE: CASE EVENT DATE: 20250511
